FAERS Safety Report 5131328-8 (Version None)
Quarter: 2006Q4

REPORT INFORMATION
  Report Type: 
  Country: None (occurrence: None)
  Receive Date: 20061020
  Receipt Date: 20061010
  Transmission Date: 20070319
  Serious: Yes (Other)
  Sender: FDA-Public Use
  Company Number: US-AMGEN-US196271

PATIENT
  Sex: Female

DRUGS (5)
  1. ARANESP [Suspect]
     Indication: ANAEMIA OF MALIGNANT DISEASE
     Route: 058
     Dates: start: 20060124, end: 20060921
  2. ACYCLOVIR [Concomitant]
  3. PREMARIN [Concomitant]
  4. PENTAMIDINE ISETHIONATE [Concomitant]
  5. IMMUNOGLOBULINS [Concomitant]

REACTIONS (1)
  - APLASIA PURE RED CELL [None]
